FAERS Safety Report 9732955 (Version 1)
Quarter: 2013Q4

REPORT INFORMATION
  Report Type: Spontaneous
  Country: NO (occurrence: NO)
  Receive Date: 20131205
  Receipt Date: 20131205
  Transmission Date: 20140711
  Serious: Yes (Life-Threatening, Other)
  Sender: FDA-Public Use
  Company Number: NO-PFIZER INC-2013343989

PATIENT
  Age: 54 Year
  Sex: Male

DRUGS (1)
  1. TAZOCIN [Suspect]
     Indication: CHOLECYSTITIS ACUTE
     Dosage: 4 DF, 3X/DAY
     Route: 041
     Dates: start: 20131111, end: 20131113

REACTIONS (9)
  - Cyanosis central [Recovered/Resolved]
  - Confusional state [Recovered/Resolved]
  - Tachycardia [Recovered/Resolved]
  - Feeling cold [Recovered/Resolved]
  - Delirium [Recovered/Resolved]
  - Urinary incontinence [Recovered/Resolved]
  - Agitation [Recovered/Resolved]
  - Tachypnoea [Recovered/Resolved]
  - Hypertonia [Recovered/Resolved]
